FAERS Safety Report 5570569-2 (Version None)
Quarter: 2007Q4

REPORT INFORMATION
  Report Type: 
  Country: None (occurrence: None)
  Receive Date: 20071221
  Receipt Date: 20071129
  Transmission Date: 20080405
  Serious: Yes (Disabling, Other)
  Sender: FDA-Public Use
  Company Number: GR-BAYER-200718112GPV

PATIENT
  Age: 28 Year
  Sex: Male
  Weight: 85 kg

DRUGS (1)
  1. CIPROXIN [Suspect]
     Indication: EPIDIDYMITIS
     Dosage: UNIT DOSE: 500 MG
     Route: 048
     Dates: start: 20071106, end: 20071121

REACTIONS (6)
  - CONFUSIONAL STATE [None]
  - DIZZINESS [None]
  - FEELING ABNORMAL [None]
  - HALLUCINATION [None]
  - HEADACHE [None]
  - ILLUSION [None]
